FAERS Safety Report 8233182-4 (Version None)
Quarter: 2012Q1

REPORT INFORMATION
  Report Type: 
  Country: None (occurrence: None)
  Receive Date: 20120326
  Receipt Date: 20120322
  Transmission Date: 20120608
  Serious: No
  Sender: FDA-Public Use
  Company Number: US-PFIZER INC-2012001445

PATIENT
  Sex: Female
  Weight: 113.83 kg

DRUGS (6)
  1. ULTRAM [Concomitant]
     Dosage: UNK
  2. AMITRIPTYLINE [Concomitant]
     Dosage: UNK
  3. SPIRIVA [Concomitant]
     Indication: CHRONIC OBSTRUCTIVE PULMONARY DISEASE
     Dosage: UNK
  4. CHANTIX [Suspect]
     Dosage: 0.5 MG, 2X/DAY
     Route: 048
     Dates: start: 20111201
  5. CHANTIX [Suspect]
     Indication: SMOKING CESSATION THERAPY
     Dosage: 0.5 MG, 1X/DAY
     Route: 048
     Dates: start: 20111201, end: 20111201
  6. ALBUTEROL [Concomitant]
     Dosage: UNK

REACTIONS (2)
  - PRURITUS [None]
  - HYPERSENSITIVITY [None]
